FAERS Safety Report 7468720-2 (Version None)
Quarter: 2011Q2

REPORT INFORMATION
  Report Type: 
  Country: None (occurrence: None)
  Receive Date: 20110510
  Receipt Date: 20110502
  Transmission Date: 20111010
  Serious: No
  Sender: FDA-Public Use
  Company Number: US-BIOGENIDEC-2011BI010536

PATIENT
  Sex: Female

DRUGS (1)
  1. TYSABRI [Suspect]
     Indication: MULTIPLE SCLEROSIS
     Route: 042
     Dates: start: 20110103

REACTIONS (12)
  - INFECTION [None]
  - FEELING HOT [None]
  - OEDEMA PERIPHERAL [None]
  - NAUSEA [None]
  - DIZZINESS [None]
  - WEIGHT INCREASED [None]
  - FEELING ABNORMAL [None]
  - ABDOMINAL DISCOMFORT [None]
  - ASTHENIA [None]
  - HYPOAESTHESIA [None]
  - HEADACHE [None]
  - SENSATION OF HEAVINESS [None]
